FAERS Safety Report 19441664 (Version 6)
Quarter: 2023Q2

REPORT INFORMATION
  Report Type: Spontaneous
  Country: US (occurrence: US)
  Receive Date: 20210621
  Receipt Date: 20230626
  Transmission Date: 20230722
  Serious: Yes (Disabling, Other)
  Sender: FDA-Public Use
  Company Number: US-ORGANON-O2106USA001587

PATIENT
  Sex: Female

DRUGS (2)
  1. SINGULAIR [Suspect]
     Active Substance: MONTELUKAST SODIUM
     Indication: Rhinitis allergic
     Dosage: 1 TAB, ORALLY QPM
     Route: 048
     Dates: start: 1999, end: 2012
  2. SINGULAIR [Suspect]
     Active Substance: MONTELUKAST SODIUM
     Dosage: TAKE 1 TABLET BY MOUTH EVERY EVENING, TOTAL 30 TABLETS
     Route: 048
     Dates: start: 2005, end: 2020

REACTIONS (23)
  - Neuropsychiatric symptoms [Not Recovered/Not Resolved]
  - Intentional self-injury [Not Recovered/Not Resolved]
  - Anxiety [Not Recovered/Not Resolved]
  - Suicidal ideation [Not Recovered/Not Resolved]
  - Depression [Not Recovered/Not Resolved]
  - Bipolar II disorder [Unknown]
  - Generalised anxiety disorder [Unknown]
  - Sleep disorder [Unknown]
  - Tremor [Unknown]
  - Dysphemia [Unknown]
  - Autism spectrum disorder [Not Recovered/Not Resolved]
  - Crohn^s disease [Unknown]
  - Post-traumatic stress disorder [Unknown]
  - Attention deficit hyperactivity disorder [Unknown]
  - Mania [Unknown]
  - Borderline personality disorder [Unknown]
  - Ulcer [Unknown]
  - Head injury [Unknown]
  - Speech disorder [Unknown]
  - Cough [Unknown]
  - Upper respiratory tract infection [Recovered/Resolved]
  - Hypoaesthesia [Unknown]
  - Dyspepsia [Unknown]

NARRATIVE: CASE EVENT DATE: 19990101
